FAERS Safety Report 9751871 (Version 1)
Quarter: 2013Q4

REPORT INFORMATION
  Report Type: Spontaneous
  Country: US (occurrence: US)
  Receive Date: 20131213
  Receipt Date: 20131213
  Transmission Date: 20140711
  Serious: No
  Sender: FDA-Public Use
  Company Number: US-BIOGENIDEC-2013BI119354

PATIENT
  Age: 51 Year
  Sex: Female

DRUGS (6)
  1. AVONEX [Suspect]
     Indication: MULTIPLE SCLEROSIS
     Route: 030
     Dates: start: 20120313
  2. EFFEXOR [Concomitant]
  3. ENABLEX [Concomitant]
  4. NEURONTIN [Concomitant]
  5. TOPAMAX [Concomitant]
  6. TOVIAZ [Concomitant]

REACTIONS (1)
  - Urinary incontinence [Unknown]
